FAERS Safety Report 9386822 (Version 3)
Quarter: 2013Q4

REPORT INFORMATION
  Report Type: Spontaneous
  Country: IT (occurrence: IT)
  Receive Date: 20130708
  Receipt Date: 20131024
  Transmission Date: 20140711
  Serious: Yes (Hospitalization)
  Sender: FDA-Public Use
  Company Number: IT-009507513-1307ITA002501

PATIENT
  Age: 47 Year
  Sex: Male
  Weight: 73 kg

DRUGS (4)
  1. PEGINTRON [Suspect]
     Indication: CHRONIC HEPATITIS C
     Dosage: 120 MICROGRAM, QW
     Route: 058
     Dates: start: 20130403, end: 20130628
  2. VICTRELIS [Suspect]
     Indication: CHRONIC HEPATITIS C
     Dosage: 2400 MG, QD
     Route: 048
     Dates: start: 20130508, end: 20130701
  3. COPEGUS [Suspect]
     Indication: CHRONIC HEPATITIS C
     Dosage: 800 MG, QD
     Route: 048
     Dates: start: 20130403, end: 20130701
  4. CARDIAZOL PARACODINA [Concomitant]
     Indication: COUGH
     Dosage: 60 GTT, 20 MG/ML ORAL DROPS
     Route: 048
     Dates: start: 20130605, end: 20130701

REACTIONS (1)
  - Neutropenia [Not Recovered/Not Resolved]
